FAERS Safety Report 6734244-0 (Version None)
Quarter: 2010Q2

REPORT INFORMATION
  Report Type: 
  Country: None (occurrence: None)
  Receive Date: 20100520
  Receipt Date: 20100511
  Transmission Date: 20101027
  Serious: Yes (Other)
  Sender: FDA-Public Use
  Company Number: PHHY2010GB16575

PATIENT
  Sex: Female

DRUGS (2)
  1. CLOZARIL [Suspect]
     Indication: SCHIZOPHRENIA
     Dosage: 175 MG AM, 250 MG PM
     Route: 048
     Dates: start: 19970613
  2. PAROXETINE [Concomitant]
     Dosage: 20 MG, UNK
     Route: 048

REACTIONS (3)
  - ANTIPSYCHOTIC DRUG LEVEL INCREASED [None]
  - BLOOD CREATININE DECREASED [None]
  - GLOMERULAR FILTRATION RATE DECREASED [None]
